FAERS Safety Report 22106972 (Version 1)
Quarter: 2023Q1

REPORT INFORMATION
  Report Type: Spontaneous
  Country: US (occurrence: US)
  Receive Date: 20230317
  Receipt Date: 20230317
  Transmission Date: 20230417
  Serious: No
  Sender: FDA-Public Use
  Company Number: US-SA-SAC20230315000856

PATIENT
  Age: 47 Year
  Sex: Male

DRUGS (18)
  1. FABRAZYME [Suspect]
     Active Substance: AGALSIDASE BETA
     Indication: Lipidosis
     Dosage: 85 MG, QOW
     Route: 042
     Dates: start: 20121213
  2. TACROLIMUS [Concomitant]
     Active Substance: TACROLIMUS
  3. LOSARTAN [Concomitant]
     Active Substance: LOSARTAN
  4. TEGRETOL [Concomitant]
     Active Substance: CARBAMAZEPINE
  5. CALCITRIOL [Concomitant]
     Active Substance: CALCITRIOL
  6. DULOXETINE [Concomitant]
     Active Substance: DULOXETINE
  7. BRILINTA [Concomitant]
     Active Substance: TICAGRELOR
  8. TEMAZEPAM [Concomitant]
     Active Substance: TEMAZEPAM
  9. ASPIRIN [Concomitant]
     Active Substance: ASPIRIN
  10. ATORVASTATIN [Concomitant]
     Active Substance: ATORVASTATIN
  11. METOPROLOL [Concomitant]
     Active Substance: METOPROLOL
  12. RENVELA [Concomitant]
     Active Substance: SEVELAMER CARBONATE
  13. COLACE [Concomitant]
     Active Substance: DOCUSATE SODIUM
  14. GABAPENTIN [Concomitant]
     Active Substance: GABAPENTIN
  15. CYMBALTA [Concomitant]
     Active Substance: DULOXETINE HYDROCHLORIDE
  16. RAMIPRIL [Concomitant]
     Active Substance: RAMIPRIL
  17. DIOVAN [Concomitant]
     Active Substance: VALSARTAN
  18. VITAMINS NOS [Concomitant]
     Active Substance: VITAMINS

REACTIONS (1)
  - Product use in unapproved indication [Unknown]

NARRATIVE: CASE EVENT DATE: 20121213
